FAERS Safety Report 17508590 (Version 1)
Quarter: 2020Q1

REPORT INFORMATION
  Report Type: Spontaneous
  Country: RU (occurrence: RU)
  Receive Date: 20200306
  Receipt Date: 20200306
  Transmission Date: 20200409
  Serious: Yes (Life-Threatening)
  Sender: FDA-Public Use
  Company Number: RU-TEVA-2020-RU-1193362

PATIENT
  Age: 34 Year
  Sex: Male
  Weight: 65 kg

DRUGS (5)
  1. TOPALEPSIN [Suspect]
     Active Substance: TOPIRAMATE
     Indication: EPILEPSY
     Dosage: DAILY DOSE- 200 / 200 / 200 / 200 MG?SINGLE DOSE - 100 / 100 / 100/ 100 MG
     Route: 048
     Dates: start: 20170301, end: 20170505
  2. TOPSAVER (TOPIRAMATE) [Suspect]
     Active Substance: TOPIRAMATE
     Indication: EPILEPSY
     Dosage: DAILY DOSE- 200 / 200 / 200 / 200 MG?SINGLE DOSE - 100 / 100 / 100/ 100 MG
     Route: 048
     Dates: start: 20170301, end: 20170505
  3. VALPROIC ACID. [Concomitant]
     Active Substance: VALPROIC ACID
     Indication: EPILEPSY
     Route: 048
     Dates: start: 20110101
  4. DEPAKIN? CHRONOSPHERE [Concomitant]
     Indication: EPILEPSY
     Route: 048
     Dates: start: 20110101
  5. TOPIRAMAT [Suspect]
     Active Substance: TOPIRAMATE
     Indication: EPILEPSY
     Dosage: DAILY DOSE- 200 / 200 / 200 / 200 MG?SINGLE DOSE - 100 / 100 / 100/ 100 MG
     Route: 048
     Dates: start: 20170301, end: 20170505

REACTIONS (1)
  - Drug ineffective [Unknown]
